FAERS Safety Report 6903595-9 (Version None)
Quarter: 2010Q3

REPORT INFORMATION
  Report Type: 
  Country: None (occurrence: None)
  Receive Date: 20100803
  Receipt Date: 20081027
  Transmission Date: 20110219
  Serious: No
  Sender: FDA-Public Use
  Company Number: US-PFIZER INC-2008091465

PATIENT
  Sex: Male

DRUGS (3)
  1. LYRICA [Suspect]
     Indication: FIBROMYALGIA
     Dates: start: 20080901
  2. WARFARIN SODIUM [Concomitant]
  3. ZOCOR [Concomitant]

REACTIONS (1)
  - VISUAL ACUITY REDUCED [None]
